FAERS Safety Report 7828786-4 (Version None)
Quarter: 2011Q4

REPORT INFORMATION
  Report Type: 
  Country: None (occurrence: None)
  Receive Date: 20111020
  Receipt Date: 20111013
  Transmission Date: 20120403
  Serious: Yes (Other)
  Sender: FDA-Public Use
  Company Number: US-ASTRAZENECA-2010SE06759

PATIENT
  Age: 72 Year
  Sex: Female

DRUGS (7)
  1. SEROQUEL [Interacting]
     Indication: FEELING OF RELAXATION
     Route: 048
  2. VITAMIN D [Concomitant]
  3. NEXIUM [Suspect]
     Route: 048
  4. PRILOSEC [Interacting]
     Route: 048
  5. SEROQUEL [Interacting]
     Indication: SLEEP DISORDER
     Route: 048
  6. SEROQUEL [Interacting]
     Route: 048
  7. SEROQUEL [Interacting]
     Route: 048

REACTIONS (17)
  - NASOPHARYNGITIS [None]
  - OROPHARYNGEAL PAIN [None]
  - FLATULENCE [None]
  - MALAISE [None]
  - HEARING IMPAIRED [None]
  - DRUG INTERACTION [None]
  - FALL [None]
  - OFF LABEL USE [None]
  - CARDIAC DISORDER [None]
  - VOMITING [None]
  - DRUG INEFFECTIVE [None]
  - DRUG DOSE OMISSION [None]
  - THROAT IRRITATION [None]
  - DISCOMFORT [None]
  - VITAMIN D DECREASED [None]
  - THERAPEUTIC RESPONSE UNEXPECTED [None]
  - VISUAL IMPAIRMENT [None]
